FAERS Safety Report 4588122-6 (Version None)
Quarter: 2005Q1

REPORT INFORMATION
  Report Type: 
  Country: None (occurrence: None)
  Receive Date: 20050216
  Receipt Date: 20050207
  Transmission Date: 20050727
  Serious: Yes (Hospitalization)
  Sender: FDA-Public Use
  Company Number: USA-2005-0018228

PATIENT
  Age: 68 Year
  Sex: Female

DRUGS (4)
  1. CEFDITOREN PIVOXIL (SIMILAR TO NDA 21-222)(CEFDITOREN PIVOXIL) OTHER [Suspect]
     Indication: PURULENT DISCHARGE
     Dosage: 300 MG, TID, ORAL
     Route: 048
     Dates: start: 20041122, end: 20041123
  2. EBRANTIL (URAPIDIL) [Concomitant]
  3. TOKISYAKUYAKUSAN (HERBAL EXTRACTS NOS) [Concomitant]
  4. URSODIOL [Concomitant]

REACTIONS (7)
  - ALANINE AMINOTRANSFERASE INCREASED [None]
  - ANOREXIA [None]
  - ASPARTATE AMINOTRANSFERASE INCREASED [None]
  - GAMMA-GLUTAMYLTRANSFERASE INCREASED [None]
  - LIVER DISORDER [None]
  - NEUROGENIC BLADDER [None]
  - PURULENT DISCHARGE [None]
